FAERS Safety Report 9441601 (Version 3)
Quarter: 2013Q3

REPORT INFORMATION
  Report Type: Report from Study
  Country: TW (occurrence: TW)
  Receive Date: 20130806
  Receipt Date: 20130821
  Transmission Date: 20140515
  Serious: Yes (Death)
  Sender: FDA-Public Use
  Company Number: TW-AMGEN-TWNCT2013054663

PATIENT
  Age: 70 Year
  Sex: Female
  Weight: 60 kg

DRUGS (10)
  1. ETANERCEPT [Suspect]
     Indication: RHEUMATOID ARTHRITIS
     Dosage: 50 MG, QWK
     Route: 058
     Dates: start: 20120506
  2. METHOTREXATE [Concomitant]
     Indication: RHEUMATOID ARTHRITIS
     Dosage: 15 MG, QWK
     Route: 048
     Dates: start: 20121219
  3. ETORICOXIB [Concomitant]
     Indication: RHEUMATOID ARTHRITIS
     Dosage: 60 MG, 1X/DAY
     Route: 048
     Dates: start: 20120719
  4. FOLIC ACID [Concomitant]
     Indication: RHEUMATOID ARTHRITIS
     Dosage: 5 MG, 1X/DAY
     Route: 048
     Dates: start: 20121219
  5. SUWELL [Concomitant]
     Indication: GASTRIC DISORDER
     Dosage: 1 DF, 2X/DAY
     Route: 048
     Dates: start: 20121219
  6. PREDNISOLONE [Concomitant]
     Indication: RHEUMATOID ARTHRITIS
     Dosage: 5 MG, 1X/DAY
     Route: 048
     Dates: start: 20130408
  7. CINNARIZINE [Concomitant]
     Indication: DIZZINESS
     Dosage: 25 MG, 2X/DAY
     Dates: start: 20130409
  8. VALSARTAN [Concomitant]
     Indication: HYPERTENSION
     Dosage: 80 MG, 1X/DAY
     Route: 048
     Dates: start: 20130702
  9. CHLORZOXAZONE [Concomitant]
     Indication: DIZZINESS
     Dosage: 200 MG, 1X/DAY
     Route: 048
     Dates: start: 20130702
  10. VILON [Concomitant]
     Indication: SUPPLEMENTATION THERAPY
     Dosage: 1 DF, 2X/DAY
     Route: 048
     Dates: start: 20130702

REACTIONS (1)
  - Sudden death [Fatal]
